FAERS Safety Report 7136082-6 (Version None)
Quarter: 2010Q4

REPORT INFORMATION
  Report Type: 
  Country: None (occurrence: None)
  Receive Date: 20101204
  Receipt Date: 20101115
  Transmission Date: 20110411
  Serious: Yes (Other)
  Sender: FDA-Public Use
  Company Number: US-BAYER-201020098NA

PATIENT

DRUGS (5)
  1. YASMIN [Suspect]
     Route: 048
     Dates: start: 20050526, end: 20071001
  2. YAZ [Suspect]
     Route: 048
     Dates: start: 20071101, end: 20090501
  3. ORTHO TRI-CYCLEN [Concomitant]
  4. ALEVE (CAPLET) [Concomitant]
  5. NERVOUS SYSTEM [Concomitant]
     Indication: MIGRAINE

REACTIONS (3)
  - BILOMA [None]
  - CHOLECYSTITIS CHRONIC [None]
  - CHOLELITHIASIS [None]
